FAERS Safety Report 14843563 (Version 4)
Quarter: 2018Q3

REPORT INFORMATION
  Report Type: Report from Study
  Country: US (occurrence: US)
  Receive Date: 20180503
  Receipt Date: 20180807
  Transmission Date: 20181010
  Serious: Yes (Hospitalization)
  Sender: FDA-Public Use
  Company Number: US-LUNDBECK-DKLU2047571

PATIENT
  Age: 4 Month
  Sex: Female
  Weight: 6 kg

DRUGS (1)
  1. SABRIL [Suspect]
     Active Substance: VIGABATRIN
     Indication: TUBEROUS SCLEROSIS COMPLEX
     Route: 048
     Dates: start: 20180104

REACTIONS (4)
  - Irritability [Unknown]
  - Teething [Unknown]
  - Pyrexia [Unknown]
  - Food refusal [Unknown]

NARRATIVE: CASE EVENT DATE: 20180307
